FAERS Safety Report 7525230-1 (Version None)
Quarter: 2011Q2

REPORT INFORMATION
  Report Type: 
  Country: None (occurrence: None)
  Receive Date: 20110602
  Receipt Date: 20110602
  Transmission Date: 20111010
  Serious: Yes (Life-Threatening, Other)
  Sender: FDA-Public Use
  Company Number: None

PATIENT
  Age: 42 Year
  Sex: Male
  Weight: 69.8539 kg

DRUGS (1)
  1. SUBOXONE [Suspect]
     Indication: PAIN MANAGEMENT
     Dosage: 8 MG 3- 4 X DAY SL
     Route: 060
     Dates: start: 20110101, end: 20110502

REACTIONS (2)
  - DRUG DEPENDENCE [None]
  - INJURY [None]
